FAERS Safety Report 8004105-8 (Version None)
Quarter: 2011Q4

REPORT INFORMATION
  Report Type: 
  Country: None (occurrence: None)
  Receive Date: 20111222
  Receipt Date: 20111124
  Transmission Date: 20120403
  Serious: Yes (Disabling)
  Sender: FDA-Public Use
  Company Number: PHHO2011NZ019758

PATIENT
  Sex: Female

DRUGS (18)
  1. VANCOMYCIN HYCHLORIDE [Concomitant]
     Dosage: 125 MG, UNK
     Route: 048
     Dates: start: 20111013, end: 20111023
  2. FLUCONAZOLE [Concomitant]
     Dosage: 200 MG, UNK
     Dates: start: 20111018
  3. CODEINE [Concomitant]
     Dosage: 30-60 MG
     Dates: start: 20111007, end: 20111026
  4. EVEROLIMUS [Suspect]
     Indication: ACUTE MYELOID LEUKAEMIA
     Dosage: UNK
     Route: 048
     Dates: start: 20110809
  5. ONDANSETRON [Concomitant]
     Dosage: 8 MG, UNK
     Dates: start: 20110811
  6. NILSTAT [Concomitant]
     Dosage: 300 UG, UNK
     Dates: start: 20111013, end: 20111017
  7. SLOW-K [Concomitant]
     Dosage: UNK
     Dates: start: 20111016, end: 20111018
  8. CYTARABINE [Suspect]
     Indication: ACUTE MYELOID LEUKAEMIA
     Dosage: UNK
     Route: 048
     Dates: start: 20110809
  9. CYCLIZINE [Concomitant]
     Dosage: 25-60 MG
     Dates: start: 20111006, end: 20111026
  10. PHOSPHATE-SANDOZ [Concomitant]
     Dosage: UNK
     Dates: start: 20111014, end: 20111017
  11. POSACONAZOLE [Concomitant]
     Dosage: 200 MG, UNK
     Dates: start: 20111011, end: 20111026
  12. NEUPOGEN [Concomitant]
     Dosage: 300 UG, UNK
     Dates: start: 20111013, end: 20111017
  13. ETOPOSIDE [Suspect]
     Indication: ACUTE MYELOID LEUKAEMIA
     Dosage: UNK
     Dates: start: 20110809
  14. SCOPOLAMINE [Concomitant]
     Dosage: 10 MG, UNK
     Dates: start: 20111008, end: 20111016
  15. ZOPICLONE [Concomitant]
     Dosage: 75 MG, UNK
     Dates: start: 20111008, end: 20111026
  16. DAUNORUBICIN HCL [Suspect]
     Indication: ACUTE MYELOID LEUKAEMIA
     Dosage: UNK
     Dates: start: 20110809
  17. CITALOPRAM [Concomitant]
     Dosage: 10 MG, UNK
     Dates: start: 20111005
  18. ACYCLOVIR [Concomitant]
     Dosage: 400 MG, UNK
     Dates: start: 20110811

REACTIONS (2)
  - EYE INFECTION TOXOPLASMAL [None]
  - UVEITIS [None]
